FAERS Safety Report 6234977-9 (Version None)
Quarter: 2009Q2

REPORT INFORMATION
  Report Type: 
  Country: None (occurrence: None)
  Receive Date: 20090616
  Receipt Date: 20090608
  Transmission Date: 20091009
  Serious: Yes (Life-Threatening, Hospitalization)
  Sender: FDA-Public Use
  Company Number: ADR3072009 (DE-BFARM-09022427)

PATIENT
  Age: 82 Year
  Sex: Female

DRUGS (8)
  1. SIMVASTATIN [Suspect]
     Indication: HYPERLIPIDAEMIA
     Dosage: 20 MG, ORAL
     Route: 048
     Dates: start: 20070101
  2. CLOPIDOGREL [Concomitant]
  3. ACETYLSALICYLIC ACID SRT [Concomitant]
  4. FALITHROM [Concomitant]
  5. RAMIPRIL [Concomitant]
  6. BISOPROLOL [Concomitant]
  7. TORSEMIDE [Concomitant]
  8. PANTOZOL [Concomitant]

REACTIONS (2)
  - DRUG INTERACTION [None]
  - GASTROINTESTINAL HAEMORRHAGE [None]
